FAERS Safety Report 5216372-4 (Version None)
Quarter: 2007Q1

REPORT INFORMATION
  Report Type: 
  Country: None (occurrence: None)
  Receive Date: 20070123
  Receipt Date: 20070110
  Transmission Date: 20070707
  Serious: Yes (Death)
  Sender: FDA-Public Use
  Company Number: US-ELI_LILLY_AND_COMPANY-US200611005273

PATIENT
  Age: 40 Year
  Sex: Male

DRUGS (4)
  1. CYMBALTA [Suspect]
     Indication: DEPRESSION
     Dosage: 60 MG, UNK
  2. KLONOPIN [Concomitant]
     Dosage: 4 MG, DAILY (1/D)
  3. TRAZODIL [Concomitant]
     Dosage: 150 MG, EACH EVENING
  4. SEROQUEL [Concomitant]
     Dosage: 25 MG, UNK

REACTIONS (1)
  - DEATH [None]
